FAERS Safety Report 18600356 (Version 1)
Quarter: 2020Q4

REPORT INFORMATION
  Report Type: Report from Study
  Country: BR (occurrence: BR)
  Receive Date: 20201210
  Receipt Date: 20201210
  Transmission Date: 20210114
  Serious: Yes (Other)
  Sender: FDA-Public Use
  Company Number: NVSC2020BR326549

PATIENT
  Age: 72 Year
  Sex: Female

DRUGS (2)
  1. FORASEQ [Suspect]
     Active Substance: BUDESONIDE\FORMOTEROL FUMARATE
     Indication: PRODUCT USED FOR UNKNOWN INDICATION
     Dosage: UNK
     Route: 065
  2. GALVUS MET [Suspect]
     Active Substance: METFORMIN HYDROCHLORIDE\VILDAGLIPTIN
     Indication: PRODUCT USED FOR UNKNOWN INDICATION
     Dosage: UNK, QD, MORE THAN 7 YEARS AGO
     Route: 065

REACTIONS (6)
  - Diabetes mellitus [Unknown]
  - Stress [Recovered/Resolved]
  - Neoplasm malignant [Unknown]
  - Blood pressure increased [Recovered/Resolved]
  - Nervousness [Recovered/Resolved]
  - Asthma [Unknown]

NARRATIVE: CASE EVENT DATE: 20201203
